FAERS Safety Report 9798378 (Version 1)
Quarter: 2014Q1

REPORT INFORMATION
  Report Type: Spontaneous
  Country: US (occurrence: US)
  Receive Date: 20140106
  Receipt Date: 20140106
  Transmission Date: 20141002
  Serious: No
  Sender: FDA-Public Use
  Company Number: US-MYLANLABS-2013S1026772

PATIENT
  Age: 78 Year
  Sex: Male
  Weight: 90.72 kg

DRUGS (1)
  1. METOPROLOL SUCCINATE EXTENDED-RELEASE TABLETS USP [Suspect]
     Indication: BLOOD PRESSURE INCREASED
     Route: 048
     Dates: start: 201309, end: 201309

REACTIONS (3)
  - Eye swelling [Recovered/Resolved]
  - Eye discharge [Recovered/Resolved]
  - Photophobia [Recovered/Resolved]
